FAERS Safety Report 4591194-6 (Version None)
Quarter: 2005Q1

REPORT INFORMATION
  Report Type: 
  Country: None (occurrence: None)
  Receive Date: 20050218
  Receipt Date: 20050203
  Transmission Date: 20050727
  Serious: Yes (Hospitalization)
  Sender: FDA-Public Use
  Company Number: 2005IM000035

PATIENT
  Age: 51 Year
  Sex: Male

DRUGS (1)
  1. ADVAFERON (A643_INTERFERON ALFACON-1) [Suspect]
     Indication: HEPATITIS C
     Dosage: 12 MU TIW SUBCUTANEOUS
     Route: 058
     Dates: start: 20040126, end: 20050114

REACTIONS (3)
  - ERYTHEMA [None]
  - SKIN NECROSIS [None]
  - SKIN ULCER [None]
